FAERS Safety Report 12285388 (Version 1)
Quarter: 2016Q2

REPORT INFORMATION
  Report Type: Spontaneous
  Country: US (occurrence: None)
  Receive Date: 20160419
  Receipt Date: 20160419
  Transmission Date: 20160815
  Serious: No
  Sender: FDA-Public Use
  Company Number: None

PATIENT
  Age: 80 Year
  Sex: Male

DRUGS (7)
  1. PREDNISONE. [Concomitant]
     Active Substance: PREDNISONE
  2. WARFARIN [Concomitant]
     Active Substance: WARFARIN
  3. ZYTIGA [Suspect]
     Active Substance: ABIRATERONE ACETATE
     Indication: PROSTATE CANCER
     Route: 048
     Dates: start: 20150808
  4. AMOXICILLIN. [Concomitant]
     Active Substance: AMOXICILLIN
  5. LISINOPRIL. [Concomitant]
     Active Substance: LISINOPRIL
  6. TRAVATAN [Concomitant]
     Active Substance: TRAVOPROST
  7. BICALUTAMIDE. [Concomitant]
     Active Substance: BICALUTAMIDE

REACTIONS (2)
  - Gait disturbance [None]
  - Asthenia [None]
